FAERS Safety Report 25533537 (Version 1)
Quarter: 2025Q3

REPORT INFORMATION
  Report Type: Spontaneous
  Country: EU (occurrence: EU)
  Receive Date: 20250709
  Receipt Date: 20250709
  Transmission Date: 20251021
  Serious: Yes (Life-Threatening, Hospitalization)
  Sender: MYLAN
  Company Number: EU-MYLANLABS-2025M1056837

PATIENT
  Age: 57 Year
  Sex: Female

DRUGS (12)
  1. ALPRAZOLAM [Suspect]
     Active Substance: ALPRAZOLAM
     Indication: Product used for unknown indication
  2. ALPRAZOLAM [Suspect]
     Active Substance: ALPRAZOLAM
     Route: 065
  3. ALPRAZOLAM [Suspect]
     Active Substance: ALPRAZOLAM
     Route: 065
  4. ALPRAZOLAM [Suspect]
     Active Substance: ALPRAZOLAM
  5. TRAMADOL [Suspect]
     Active Substance: TRAMADOL
     Indication: Product used for unknown indication
  6. TRAMADOL [Suspect]
     Active Substance: TRAMADOL
     Route: 065
  7. TRAMADOL [Suspect]
     Active Substance: TRAMADOL
     Route: 065
  8. TRAMADOL [Suspect]
     Active Substance: TRAMADOL
  9. PIROXICAM [Suspect]
     Active Substance: PIROXICAM
     Indication: Product used for unknown indication
  10. PIROXICAM [Suspect]
     Active Substance: PIROXICAM
     Route: 065
  11. PIROXICAM [Suspect]
     Active Substance: PIROXICAM
     Route: 065
  12. PIROXICAM [Suspect]
     Active Substance: PIROXICAM

REACTIONS (3)
  - Hypotension [Recovered/Resolved]
  - Coma [Recovered/Resolved]
  - Poisoning deliberate [Recovered/Resolved]
